FAERS Safety Report 19665838 (Version 1)
Quarter: 2021Q3

REPORT INFORMATION
  Report Type: Spontaneous
  Country: US (occurrence: US)
  Receive Date: 20210805
  Receipt Date: 20210805
  Transmission Date: 20211014
  Serious: Yes (Death)
  Sender: FDA-Public Use
  Company Number: None

PATIENT
  Age: 36 Year
  Sex: Male

DRUGS (8)
  1. OMEPRAZOLE 40MG [Concomitant]
     Active Substance: OMEPRAZOLE
  2. MORPHINE ER 15MG [Concomitant]
     Active Substance: MORPHINE
  3. MORPHINE IR 30MG + 15MG [Concomitant]
     Active Substance: MORPHINE SULFATE
  4. HUMIRA [Suspect]
     Active Substance: ADALIMUMAB
     Indication: CROHN^S DISEASE
     Route: 058
     Dates: start: 20191119, end: 20210804
  5. MONTELUKAST [Concomitant]
     Active Substance: MONTELUKAST SODIUM
  6. DOXEPIN 100MG DON^T KNOW [Concomitant]
     Active Substance: DOXEPIN
  7. TIZANIDINE 4MG [Concomitant]
     Active Substance: TIZANIDINE
  8. BUTALBITAL AND ACETAMINOPHEN [Concomitant]
     Active Substance: ACETAMINOPHEN\BUTALBITAL

REACTIONS (1)
  - Completed suicide [None]

NARRATIVE: CASE EVENT DATE: 20210804
